FAERS Safety Report 6249055-2 (Version None)
Quarter: 2009Q2

REPORT INFORMATION
  Report Type: 
  Country: None (occurrence: None)
  Receive Date: 20090629
  Receipt Date: 20090619
  Transmission Date: 20091009
  Serious: Yes (Other)
  Sender: FDA-Public Use
  Company Number: US-AVENTIS-200915411US

PATIENT
  Sex: Female

DRUGS (6)
  1. LANTUS [Suspect]
     Route: 058
  2. OPTICLIK (INSULIN INJECTION PEN) [Suspect]
  3. HUMALOG [Concomitant]
     Dosage: DOSE: PER SLIDING SCALE WITH MEALS
  4. THYROID TAB [Concomitant]
     Dosage: DOSE: 1 TAB
  5. CARDIOVASCULAR SYSTEM DRUGS [Concomitant]
     Dosage: DOSE: 1 TAB
  6. COUMADIN [Concomitant]
     Dosage: DOSE: 1 TAB

REACTIONS (2)
  - CATARACT [None]
  - VISUAL ACUITY REDUCED [None]
